FAERS Safety Report 15881277 (Version 4)
Quarter: 2019Q3

REPORT INFORMATION
  Report Type: Report from Study
  Country: US (occurrence: US)
  Receive Date: 20190128
  Receipt Date: 20190702
  Transmission Date: 20191004
  Serious: Yes (Hospitalization, Other)
  Sender: FDA-Public Use
  Company Number: US-ACTELION-A-US2018-183844

PATIENT
  Sex: Male
  Weight: 76.19 kg

DRUGS (9)
  1. VELETRI [Suspect]
     Active Substance: EPOPROSTENOL
     Dosage: 9 NG/KG, PER MIN
     Route: 042
  2. LETAIRIS [Concomitant]
     Active Substance: AMBRISENTAN
  3. VELETRI [Suspect]
     Active Substance: EPOPROSTENOL
     Dosage: 16 NG/KG, PER MIN
     Route: 042
  4. VELETRI [Suspect]
     Active Substance: EPOPROSTENOL
     Indication: PULMONARY ARTERIAL HYPERTENSION
     Dosage: 18 NG/KG, PER MIN
     Route: 042
  5. TYVASO [Concomitant]
     Active Substance: TREPROSTINIL
  6. VELETRI [Suspect]
     Active Substance: EPOPROSTENOL
     Dosage: 12 NG/KG, PER MIN
     Route: 042
  7. ELIQUIS [Concomitant]
     Active Substance: APIXABAN
  8. VELETRI [Suspect]
     Active Substance: EPOPROSTENOL
     Dosage: 14 NG/KG, UNK
     Route: 042
  9. REMODULIN [Suspect]
     Active Substance: TREPROSTINIL
     Indication: PRODUCT USED FOR UNKNOWN INDICATION
     Route: 042

REACTIONS (20)
  - Flushing [Recovering/Resolving]
  - Decreased appetite [Unknown]
  - Catheter management [Unknown]
  - Gastrointestinal disorder [Recovering/Resolving]
  - Rash pruritic [Unknown]
  - Erythema [Unknown]
  - Oxygen saturation decreased [Unknown]
  - Platelet count decreased [Unknown]
  - Pain in jaw [Recovering/Resolving]
  - Abdominal discomfort [Unknown]
  - Malaise [Unknown]
  - Myalgia [Unknown]
  - Device leakage [Unknown]
  - Catheter site discolouration [Unknown]
  - Weight decreased [Unknown]
  - Headache [Unknown]
  - Rash [Recovering/Resolving]
  - Application site erythema [Unknown]
  - Haematochezia [Unknown]
  - Therapy change [Unknown]
